FAERS Safety Report 10008986 (Version 1)
Quarter: 2014Q1

REPORT INFORMATION
  Report Type: Spontaneous
  Country: US (occurrence: US)
  Receive Date: 20140313
  Receipt Date: 20140313
  Transmission Date: 20141002
  Serious: Yes (Hospitalization)
  Sender: FDA-Public Use
  Company Number: US-INCYTE CORPORATION-2012IN001054

PATIENT
  Age: 59 Year
  Sex: Female

DRUGS (4)
  1. JAKAFI [Suspect]
     Indication: MYELOFIBROSIS
     Dosage: 15 MG, BID
     Route: 048
  2. GLIPIZIDE [Concomitant]
  3. SYNTHROID [Concomitant]
  4. METOPROLOL [Concomitant]

REACTIONS (3)
  - Haemoglobin decreased [Unknown]
  - Dizziness [Unknown]
  - Fall [Unknown]
